FAERS Safety Report 6806224-8 (Version None)
Quarter: 2010Q2

REPORT INFORMATION
  Report Type: 
  Country: None (occurrence: None)
  Receive Date: 20100629
  Receipt Date: 20080129
  Transmission Date: 20101027
  Serious: No
  Sender: FDA-Public Use
  Company Number: US-PFIZER INC-2008007420

PATIENT
  Sex: Male
  Weight: 97.7 kg

DRUGS (2)
  1. VIAGRA [Suspect]
     Indication: ERECTILE DYSFUNCTION
     Route: 048
  2. SINEMET [Concomitant]
     Indication: PARKINSON'S DISEASE

REACTIONS (2)
  - DRUG EFFECT DECREASED [None]
  - SINUS DISORDER [None]
